FAERS Safety Report 7919685-8 (Version None)
Quarter: 2011Q4

REPORT INFORMATION
  Report Type: 
  Country: None (occurrence: None)
  Receive Date: 20111115
  Receipt Date: 20111028
  Transmission Date: 20120403
  Serious: Yes (Other)
  Sender: FDA-Public Use
  Company Number: 2011SP018934

PATIENT
  Age: 38 Year
  Sex: Male

DRUGS (1)
  1. LIDOCAINE [Suspect]
     Indication: LACERATION
     Dosage: ;BID;TOP
     Route: 061
     Dates: start: 20110326, end: 20110330

REACTIONS (17)
  - ARTHRALGIA [None]
  - TONGUE DISCOLOURATION [None]
  - ORAL FUNGAL INFECTION [None]
  - AGEUSIA [None]
  - ANHEDONIA [None]
  - OROPHARYNGEAL DISCOMFORT [None]
  - DYSPNOEA [None]
  - ERYTHEMA [None]
  - PAROSMIA [None]
  - APTYALISM [None]
  - QUALITY OF LIFE DECREASED [None]
  - TONGUE DRY [None]
  - HEARING IMPAIRED [None]
  - SKIN ODOUR ABNORMAL [None]
  - LOSS OF EMPLOYMENT [None]
  - NASAL CONGESTION [None]
  - DRY MOUTH [None]
